FAERS Safety Report 9213520 (Version 2)
Quarter: 2013Q2

REPORT INFORMATION
  Report Type: Spontaneous
  Country: IT (occurrence: IT)
  Receive Date: 20130405
  Receipt Date: 20130508
  Transmission Date: 20140414
  Serious: Yes (Hospitalization)
  Sender: FDA-Public Use
  Company Number: PHHY2013IT033027

PATIENT
  Age: 70 Year
  Sex: Male

DRUGS (7)
  1. ZOMETA [Suspect]
     Dosage: 4 MG, MONTHLY
     Route: 042
     Dates: start: 20100514, end: 20120104
  2. NOVONORM [Concomitant]
     Dosage: 1 MG, UNK
     Route: 048
  3. GLUCOPHAGE [Concomitant]
     Dosage: 1000 MG, UNK
     Route: 048
  4. SOLDESAM [Concomitant]
     Indication: PLASMA CELL MYELOMA
     Dosage: 40 MG
     Route: 048
     Dates: start: 20100626, end: 20120426
  5. REVLIMID [Concomitant]
     Indication: PLASMA CELL MYELOMA
     Dosage: 25 MG
     Route: 048
     Dates: start: 20100626, end: 20120426
  6. CARDIOASPIRIN [Concomitant]
     Dosage: 100 MG, UNK
     Route: 048
  7. ARANESP [Concomitant]
     Dosage: 150 MICROGRAM, UNK
     Route: 058

REACTIONS (1)
  - Osteonecrosis of jaw [Recovered/Resolved]
